FAERS Safety Report 5353025-6 (Version None)
Quarter: 2007Q2

REPORT INFORMATION
  Report Type: 
  Country: None (occurrence: None)
  Receive Date: 20070611
  Receipt Date: 20070530
  Transmission Date: 20071010
  Serious: Yes (Other)
  Sender: FDA-Public Use
  Company Number: FR-PFIZER INC-2007030027

PATIENT
  Sex: Female
  Weight: 52 kg

DRUGS (8)
  1. LYRICA [Suspect]
     Indication: FIBROMYALGIA
     Route: 048
     Dates: start: 20070201, end: 20070321
  2. IXEL [Concomitant]
  3. MILNACIPRAN HYDROCHLORIDE [Concomitant]
     Route: 048
  4. LEVOTHYROXINE SODIUM [Concomitant]
     Route: 048
  5. BETA-ALANINE [Concomitant]
     Route: 048
  6. SPIRONOLACTONE [Concomitant]
     Route: 048
  7. LEVOCARNITINE [Concomitant]
     Route: 048
  8. TRIMETAZIDINE DIHYDROCHLORIDE [Concomitant]
     Route: 048

REACTIONS (1)
  - TACHYCARDIA [None]
